FAERS Safety Report 17305022 (Version 2)
Quarter: 2020Q1

REPORT INFORMATION
  Report Type: Spontaneous
  Country: US (occurrence: US)
  Receive Date: 20200123
  Receipt Date: 20200327
  Transmission Date: 20200409
  Serious: No
  Sender: FDA-Public Use
  Company Number: US-PFIZER INC-2020032244

PATIENT
  Age: 46 Year
  Sex: Female

DRUGS (1)
  1. XELJANZ XR [Suspect]
     Active Substance: TOFACITINIB CITRATE
     Indication: RHEUMATOID ARTHRITIS
     Dosage: 11 MG, 1X/DAY
     Route: 048
     Dates: start: 202001, end: 202002

REACTIONS (4)
  - Abdominal pain upper [Unknown]
  - Nasal congestion [Unknown]
  - Nausea [Unknown]
  - Oropharyngeal pain [Unknown]

NARRATIVE: CASE EVENT DATE: 202001
